FAERS Safety Report 18711349 (Version 1)
Quarter: 2021Q1

REPORT INFORMATION
  Report Type: Report from Study
  Country: ES (occurrence: ES)
  Receive Date: 20210107
  Receipt Date: 20210107
  Transmission Date: 20210419
  Serious: Yes (Hospitalization)
  Sender: FDA-Public Use
  Company Number: ES-TAKEDA-ES201506646

PATIENT
  Age: 3 Year
  Sex: Male

DRUGS (13)
  1. DESLORATADINE. [Concomitant]
     Active Substance: DESLORATADINE
     Indication: BREATHING-RELATED SLEEP DISORDER
     Dosage: UNK
     Route: 048
     Dates: start: 20161114
  2. ARIPIPRAZOLE. [Concomitant]
     Active Substance: ARIPIPRAZOLE
     Indication: ANTIPSYCHOTIC DRUG LEVEL THERAPEUTIC
     Dosage: UNK
     Route: 048
     Dates: start: 20151218
  3. CLONIDINE. [Concomitant]
     Active Substance: CLONIDINE
     Indication: PSYCHOMOTOR HYPERACTIVITY
     Dosage: UNK
     Route: 048
     Dates: start: 20170323
  4. SINGULAIR [Concomitant]
     Active Substance: MONTELUKAST SODIUM
     Indication: RESPIRATORY DISORDER
     Dosage: UNK
     Route: 050
     Dates: start: 20150311, end: 20150501
  5. IDURSULFASE [Suspect]
     Active Substance: IDURSULFASE
     Indication: MUCOPOLYSACCHARIDOSIS II
     Dosage: 0.49 MG/KG, 1X/WEEK
     Route: 041
     Dates: start: 20100920
  6. AMOXICILLIN. [Concomitant]
     Active Substance: AMOXICILLIN
     Indication: OTITIS MEDIA ACUTE
     Dosage: UNK
     Route: 048
     Dates: start: 20180508, end: 20180515
  7. IDURSULFASE [Suspect]
     Active Substance: IDURSULFASE
     Dosage: 0.5 MG/KG, 1X/WEEK
     Route: 042
     Dates: start: 20120704
  8. MELAMIL [Concomitant]
     Indication: INSOMNIA
     Dosage: UNK
     Route: 048
     Dates: start: 20161028
  9. RISPERDAL [Concomitant]
     Active Substance: RISPERIDONE
     Indication: ANTIPSYCHOTIC DRUG LEVEL THERAPEUTIC
     Dosage: UNK
     Route: 048
     Dates: start: 20150717, end: 20151218
  10. SALBUTAMOL [Concomitant]
     Active Substance: ALBUTEROL
     Indication: RESPIRATORY DISORDER
     Dosage: UNK
     Route: 048
     Dates: start: 20120524
  11. HYDROXYZINE HYDROCHLORIDE. [Concomitant]
     Active Substance: HYDROXYZINE HYDROCHLORIDE
     Indication: PRODUCT USED FOR UNKNOWN INDICATION
     Dosage: UNK
     Route: 042
     Dates: start: 20100920
  12. BUDESONIDE. [Concomitant]
     Active Substance: BUDESONIDE
     Indication: RESPIRATORY DISORDER
     Dosage: UNK
     Route: 050
     Dates: end: 20100524
  13. PARACETAMOL [Concomitant]
     Active Substance: ACETAMINOPHEN
     Indication: OTITIS MEDIA ACUTE
     Dosage: UNK
     Route: 048
     Dates: start: 20180508, end: 201805

REACTIONS (3)
  - Drug eruption [Recovered/Resolved]
  - Urticaria [Recovered/Resolved]
  - Tonsillar hypertrophy [Recovered/Resolved]

NARRATIVE: CASE EVENT DATE: 20101018
